FAERS Safety Report 7972999-8 (Version None)
Quarter: 2011Q4

REPORT INFORMATION
  Report Type: 
  Country: None (occurrence: None)
  Receive Date: 20111209
  Receipt Date: 20111125
  Transmission Date: 20120403
  Serious: Yes (Death, Hospitalization)
  Sender: FDA-Public Use
  Company Number: 2011AP002846

PATIENT
  Age: 31 Year
  Sex: Female

DRUGS (3)
  1. ZONISAMIDE [Suspect]
     Indication: MIGRAINE
  2. CELECOXIB [Concomitant]
  3. SULFAMETHOXAZOLE AND TRIMETHOPRIM [Suspect]
     Indication: RESPIRATORY TRACT INFECTION

REACTIONS (9)
  - DRUG RASH WITH EOSINOPHILIA AND SYSTEMIC SYMPTOMS [None]
  - RENAL FAILURE ACUTE [None]
  - HYPOTENSION [None]
  - PERICARDIAL EFFUSION [None]
  - CARDIAC TAMPONADE [None]
  - CARDIOMEGALY [None]
  - EOSINOPHILIC MYOCARDITIS [None]
  - CARDIAC ARREST [None]
  - NECROSIS [None]
